FAERS Safety Report 5620639-5 (Version None)
Quarter: 2008Q1

REPORT INFORMATION
  Report Type: 
  Country: None (occurrence: None)
  Receive Date: 20080208
  Receipt Date: 20080201
  Transmission Date: 20080703
  Serious: Yes (Other)
  Sender: FDA-Public Use
  Company Number: HQWYE267120JUL04

PATIENT
  Sex: Female

DRUGS (3)
  1. PREMPRO [Suspect]
     Indication: HORMONE REPLACEMENT THERAPY
     Dosage: UNKNOWN
     Dates: start: 19960101, end: 19980101
  2. MEDROXYPROGESTERONE ACETATE [Suspect]
  3. ESTRADERM [Suspect]

REACTIONS (1)
  - BREAST CANCER METASTATIC [None]
